APPROVED DRUG PRODUCT: ZEMPLAR
Active Ingredient: PARICALCITOL
Strength: 0.002MG/ML (0.002MG/ML)
Dosage Form/Route: SOLUTION;INTRAVENOUS
Application: N020819 | Product #002 | TE Code: AP
Applicant: ABBVIE INC
Approved: Feb 1, 2000 | RLD: Yes | RS: Yes | Type: RX